FAERS Safety Report 7025303-6 (Version None)
Quarter: 2010Q4

REPORT INFORMATION
  Report Type: 
  Country: None (occurrence: None)
  Receive Date: 20101001
  Receipt Date: 20100917
  Transmission Date: 20110411
  Serious: Yes (Hospitalization, Other)
  Sender: FDA-Public Use
  Company Number: BE-GENENTECH-304956

PATIENT
  Age: 65 Year
  Sex: Female

DRUGS (5)
  1. XOLAIR [Suspect]
     Indication: PRODUCT USED FOR UNKNOWN INDICATION
     Dosage: 300 MG, 1/MONTH
     Route: 058
     Dates: start: 20100301, end: 20100601
  2. CORTICOSTEROID (UNK INGREDIENTS) [Concomitant]
     Indication: PRODUCT USED FOR UNKNOWN INDICATION
     Dosage: UNK
     Dates: start: 20100501
  3. MEDROL [Concomitant]
     Indication: PRODUCT USED FOR UNKNOWN INDICATION
  4. CORTICOSTEROIDS (UNK INGREDIENTS) [Concomitant]
     Indication: PRODUCT USED FOR UNKNOWN INDICATION
     Dosage: UNK
     Dates: start: 20100501
  5. INUVAIR [Concomitant]
     Indication: PRODUCT USED FOR UNKNOWN INDICATION

REACTIONS (15)
  - ALLERGIC GRANULOMATOUS ANGIITIS [None]
  - ASPIRATION [None]
  - ASTHMA [None]
  - EOSINOPHILIA [None]
  - FLUID RETENTION [None]
  - HAEMATURIA [None]
  - MONONEUROPATHY MULTIPLEX [None]
  - PARALYSIS [None]
  - PLEURAL EFFUSION [None]
  - POLYNEUROPATHY [None]
  - SENSORY LOSS [None]
  - SINUS OPERATION [None]
  - SINUSITIS [None]
  - SKIN DISORDER [None]
  - VASCULITIS [None]
